FAERS Safety Report 8504528-4 (Version None)
Quarter: 2012Q3

REPORT INFORMATION
  Report Type: 
  Country: None (occurrence: None)
  Receive Date: 20120711
  Receipt Date: 20120706
  Transmission Date: 20120928
  Serious: Yes (Other)
  Sender: FDA-Public Use
  Company Number: FR-ROCHE-1085656

PATIENT
  Age: 45 Year
  Sex: Female

DRUGS (3)
  1. XELODA [Suspect]
     Indication: BREAST CANCER
     Dosage: DOSE INTERRUPTED
     Dates: end: 20120201
  2. XELODA [Suspect]
     Indication: METASTASES TO CENTRAL NERVOUS SYSTEM
  3. LAPATINIB [Suspect]
     Indication: BREAST CANCER
     Dosage: DOSE INTERRUPTED
     Dates: end: 20120201

REACTIONS (1)
  - GASTROINTESTINAL TOXICITY [None]
